FAERS Safety Report 17718931 (Version 1)
Quarter: 2020Q2

REPORT INFORMATION
  Report Type: Report from Study
  Country: FR (occurrence: FR)
  Receive Date: 20200428
  Receipt Date: 20200428
  Transmission Date: 20200714
  Serious: Yes (Hospitalization)
  Sender: FDA-Public Use
  Company Number: FR-OTSUKA-2019_017004

PATIENT
  Sex: Female
  Weight: 55 kg

DRUGS (6)
  1. TOLVAPTAN [Suspect]
     Active Substance: TOLVAPTAN
     Dosage: 15 MG, UNK
     Route: 048
     Dates: start: 20181110, end: 20190118
  2. SIMVASTATINE [Concomitant]
     Active Substance: SIMVASTATIN
     Indication: HYPERTENSION
     Dosage: 20 MG, QD
     Route: 048
  3. ESIDREX [Concomitant]
     Active Substance: HYDROCHLOROTHIAZIDE
     Indication: HYPERTENSION
     Dosage: 25 MG, QD
     Route: 048
  4. DESOGESTREL [Concomitant]
     Active Substance: DESOGESTREL
     Indication: HYPERTENSION
     Dosage: 75 ?G, QD
     Route: 048
  5. TOLVAPTAN [Suspect]
     Active Substance: TOLVAPTAN
     Indication: CONGENITAL CYSTIC KIDNEY DISEASE
     Dosage: 45 MG, UNK
     Route: 048
     Dates: start: 20181110, end: 20190118
  6. IRBESARTAN. [Concomitant]
     Active Substance: IRBESARTAN
     Indication: HYPERTENSION
     Dosage: 300 MG, QD
     Route: 048

REACTIONS (1)
  - Liver transplant [Recovered/Resolved]

NARRATIVE: CASE EVENT DATE: 20190118
